FAERS Safety Report 4457769-X (Version None)
Quarter: 2004Q4

REPORT INFORMATION
  Report Type: 
  Country: None (occurrence: None)
  Receive Date: 20040917
  Receipt Date: 20030731
  Transmission Date: 20050328
  Serious: Yes (Hospitalization)
  Sender: FDA-Public Use
  Company Number: US-JNJFOC-20030601777

PATIENT
  Age: 56 Year
  Sex: Male
  Weight: 63.5036 kg

DRUGS (6)
  1. TOPAMAX [Suspect]
     Indication: CONVULSION
     Dosage: 900 MG,  IN 1 DAY, ORAL
     Route: 048
     Dates: start: 20020601
  2. TEGRETOL [Concomitant]
  3. ATENOLOL [Concomitant]
  4. APA-CODEINE 300/30 (A.P. CODEINE) TABLETS [Concomitant]
  5. DILANTIN [Concomitant]
  6. ATIVAN [Concomitant]

REACTIONS (6)
  - ASTHENIA [None]
  - CONFUSIONAL STATE [None]
  - CONVULSION [None]
  - LISTLESS [None]
  - VOMITING [None]
  - WEIGHT DECREASED [None]
